FAERS Safety Report 9690968 (Version 2)
Quarter: 2014Q1

REPORT INFORMATION
  Report Type: Spontaneous
  Country: US (occurrence: US)
  Receive Date: 20131115
  Receipt Date: 20140214
  Transmission Date: 20141002
  Serious: No
  Sender: FDA-Public Use
  Company Number: US-PFIZER INC-2013325602

PATIENT
  Age: 62 Year
  Sex: Female
  Weight: 68.03 kg

DRUGS (4)
  1. LYRICA [Suspect]
     Indication: PAIN
     Dosage: 50 MG, 2X/DAY
     Dates: start: 201308
  2. LYRICA [Suspect]
     Indication: PANCREATITIS CHRONIC
     Dosage: UNK
     Dates: start: 2013
  3. LAMISIL [Suspect]
     Dosage: UNK
  4. DIAZEPAM [Concomitant]
     Indication: TEMPOROMANDIBULAR JOINT SYNDROME
     Dosage: UNK

REACTIONS (9)
  - Off label use [Unknown]
  - Chest discomfort [Unknown]
  - Dyspnoea [Unknown]
  - Blood triglycerides increased [Unknown]
  - Depression [Unknown]
  - Sleep disorder [Unknown]
  - Paraesthesia [Unknown]
  - Pain in extremity [Unknown]
  - Hypoaesthesia [Unknown]
